FAERS Safety Report 11729955 (Version 20)
Quarter: 2018Q3

REPORT INFORMATION
  Report Type: Report from Study
  Country: US (occurrence: US)
  Receive Date: 20151112
  Receipt Date: 20180921
  Transmission Date: 20181010
  Serious: Yes (Hospitalization, Other)
  Sender: FDA-Public Use
  Company Number: US-ACTELION-A-NJ2015-127076

PATIENT
  Age: 57 Year
  Sex: Female
  Weight: 90.25 kg

DRUGS (27)
  1. NORVASC [Concomitant]
     Active Substance: AMLODIPINE BESYLATE
     Dosage: 10 MG, QD
  2. CEFAZOLIN [Concomitant]
     Active Substance: CEFAZOLIN
     Dosage: UNK
     Dates: start: 20160809
  3. LASIX [Concomitant]
     Active Substance: FUROSEMIDE
     Dosage: 80 MG IN AM AND 40 MG
  4. VERAPAMIL [Concomitant]
     Active Substance: VERAPAMIL HYDROCHLORIDE
     Dosage: UNK
     Dates: start: 20160426
  5. LIPITOR [Concomitant]
     Active Substance: ATORVASTATIN CALCIUM
     Dosage: 10 MG, QD
     Route: 048
  6. ALBUTEROL. [Concomitant]
     Active Substance: ALBUTEROL
     Dosage: 2 PUFFS, EVERY 6 HRS. PRN
  7. CYMBALTA [Concomitant]
     Active Substance: DULOXETINE HYDROCHLORIDE
     Dosage: 30 MG, UNK
  8. OPSUMIT [Suspect]
     Active Substance: MACITENTAN
     Indication: PULMONARY ARTERIAL HYPERTENSION
     Dosage: 10 MG, QD
     Route: 048
     Dates: start: 201504
  9. OXYGEN. [Concomitant]
     Active Substance: OXYGEN
  10. ATROVENT [Concomitant]
     Active Substance: IPRATROPIUM BROMIDE
     Dosage: 0.03 %, 2 SPRAYS EACH NOSTRIL
  11. LEXAPRO [Concomitant]
     Active Substance: ESCITALOPRAM OXALATE
     Dosage: 20 MG, UNK
  12. FLOLAN [Concomitant]
     Active Substance: EPOPROSTENOL SODIUM
  13. ROCEPHIN [Concomitant]
     Active Substance: CEFTRIAXONE SODIUM
  14. OPSUMIT [Suspect]
     Active Substance: MACITENTAN
     Dosage: 10 MG, QD
     Route: 048
  15. REMODULIN [Concomitant]
     Active Substance: TREPROSTINIL
     Dosage: 24 NG/KG, PER MIN
     Route: 042
     Dates: start: 20161108
  16. ASPIRIN. [Concomitant]
     Active Substance: ASPIRIN
     Dosage: 81 MG, UNK
  17. ADCIRCA [Concomitant]
     Active Substance: TADALAFIL
     Dosage: 40 MG, QD
     Dates: start: 201504
  18. LOVENOX [Concomitant]
     Active Substance: ENOXAPARIN SODIUM
     Dosage: UNK
     Dates: start: 20160806
  19. PERCOCET [Concomitant]
     Active Substance: ACETAMINOPHEN\OXYCODONE HYDROCHLORIDE
     Dosage: UNK
     Dates: start: 20160810
  20. ALDACTONE [Concomitant]
     Active Substance: SPIRONOLACTONE
     Dosage: 25 MG, QD
  21. POTASSIUM CHLORIDE. [Concomitant]
     Active Substance: POTASSIUM CHLORIDE
     Dosage: 20 MG, BID
  22. ZANTAC [Concomitant]
     Active Substance: RANITIDINE HYDROCHLORIDE
     Dosage: 300 MG, UNK
  23. BUSPAR [Concomitant]
     Active Substance: BUSPIRONE HYDROCHLORIDE
     Dosage: 10 MG, BID
  24. KLONOPIN [Concomitant]
     Active Substance: CLONAZEPAM
     Dosage: 1 MG, QPM
  25. PAXIL [Concomitant]
     Active Substance: PAROXETINE HYDROCHLORIDE
     Dosage: 40 MG, QAM
  26. NEURONTIN [Concomitant]
     Active Substance: GABAPENTIN
     Dosage: 100 MG, TID
     Route: 048
  27. PROTONIX [Concomitant]
     Active Substance: PANTOPRAZOLE SODIUM
     Dosage: 20 MG, QAM

REACTIONS (41)
  - Breast conserving surgery [Unknown]
  - Biopsy [Unknown]
  - Syncope [Recovered/Resolved]
  - Multiple allergies [Unknown]
  - Weight increased [Recovered/Resolved]
  - Chest pain [Unknown]
  - Bronchitis [Unknown]
  - Aspiration [Unknown]
  - Seizure [Recovered/Resolved]
  - Secretion discharge [Recovered/Resolved]
  - Headache [Unknown]
  - Malaise [Recovered/Resolved]
  - Intraductal proliferative breast lesion [Unknown]
  - Hypoxia [Recovered/Resolved]
  - Chest discomfort [Recovered/Resolved]
  - Device dislocation [Unknown]
  - Muscle spasms [Unknown]
  - Disease progression [Unknown]
  - Dyspnoea [Recovered/Resolved]
  - Feeding disorder [Unknown]
  - Precancerous lesion excision [Recovered/Resolved]
  - Dizziness [Not Recovered/Not Resolved]
  - Orthostatic hypotension [Not Recovered/Not Resolved]
  - Odynophagia [Unknown]
  - Pulmonary arterial hypertension [Unknown]
  - Wheezing [Recovered/Resolved]
  - Brain neoplasm [Not Recovered/Not Resolved]
  - Pneumonia [Recovered/Resolved]
  - Pneumonia respiratory syncytial viral [Recovered/Resolved]
  - Productive cough [Recovered/Resolved]
  - Cough [Recovered/Resolved]
  - Dyspepsia [Unknown]
  - Asthenia [Unknown]
  - Loss of personal independence in daily activities [Unknown]
  - Fatigue [Recovered/Resolved]
  - Chills [Recovered/Resolved]
  - Hypotension [Unknown]
  - Oxygen saturation decreased [Recovered/Resolved]
  - Vomiting [Unknown]
  - Blood potassium decreased [Unknown]
  - Neurofibromatosis [Not Recovered/Not Resolved]

NARRATIVE: CASE EVENT DATE: 20151030
